FAERS Safety Report 6656516-0 (Version None)
Quarter: 2010Q1

REPORT INFORMATION
  Report Type: 
  Country: None (occurrence: None)
  Receive Date: 20100329
  Receipt Date: 20100319
  Transmission Date: 20100710
  Serious: Yes (Other)
  Sender: FDA-Public Use
  Company Number: JP-PFIZER INC-2010031998

PATIENT
  Sex: Female

DRUGS (2)
  1. CADUET [Suspect]
     Indication: HYPERTENSION
     Dosage: 5 MG/5 MG
     Route: 048
     Dates: start: 20100201
  2. CADUET [Suspect]
     Indication: DYSLIPIDAEMIA

REACTIONS (1)
  - HIGH DENSITY LIPOPROTEIN DECREASED [None]
